FAERS Safety Report 16793824 (Version 3)
Quarter: 2019Q4

REPORT INFORMATION
  Report Type: Report from Study
  Country: CN (occurrence: CN)
  Receive Date: 20190911
  Receipt Date: 20191014
  Transmission Date: 20200122
  Serious: Yes (Hospitalization)
  Sender: FDA-Public Use
  Company Number: CN-ROCHE-2397640

PATIENT
  Age: 53 Year
  Sex: Female
  Weight: 66 kg

DRUGS (12)
  1. BICYCLOL [Concomitant]
     Active Substance: BICYCLOL
     Indication: HEPATIC FUNCTION ABNORMAL
     Route: 065
     Dates: start: 20180921
  2. COMPOUND GLYCYRRHIZIN [CYSTEINE;GLYCINE;GLYCYRRHIZIC ACID] [Concomitant]
     Route: 065
     Dates: start: 20190807, end: 20190807
  3. COMPOUND GLYCYRRHIZIN [CYSTEINE;GLYCINE;GLYCYRRHIZIC ACID] [Concomitant]
     Indication: HEPATIC FUNCTION ABNORMAL
     Route: 065
     Dates: start: 20190716, end: 20190718
  4. ZOMETA [Concomitant]
     Active Substance: ZOLEDRONIC ACID
     Route: 065
     Dates: start: 20170927
  5. REDUCED GLUTATHIONE SODIUM [Concomitant]
     Active Substance: GLUTATHIONE
     Route: 065
     Dates: start: 20190807, end: 20190807
  6. POLYENE PHOSPHATIDYLCHOLINE [Concomitant]
     Active Substance: PHOSPHOLIPID
     Route: 065
     Dates: start: 20180222
  7. CALCIUM CARBONATE;COLECALCIFEROL [Concomitant]
     Active Substance: CALCIUM CARBONATE\CHOLECALCIFEROL
     Route: 065
     Dates: start: 20190601
  8. TRASTUZUMAB EMTANSINE [Suspect]
     Active Substance: ADO-TRASTUZUMAB EMTANSINE
     Indication: BREAST CANCER METASTATIC
     Dosage: DATE OF MOST RECENT DOSE OF TRASTUZUMAB EMTANSINE ADMINISTERED PRIOR TO ONSET OF PULMONARY ARTERIAL
     Route: 042
     Dates: start: 20171019
  9. POLYENE PHOSPHATIDYLCHOLINE [Concomitant]
     Active Substance: PHOSPHOLIPID
     Indication: HEPATIC FUNCTION ABNORMAL
     Route: 065
     Dates: start: 20190708, end: 20190708
  10. REDUCED GLUTATHIONE SODIUM [Concomitant]
     Active Substance: GLUTATHIONE
     Indication: HEPATIC FUNCTION ABNORMAL
     Route: 065
     Dates: start: 20190716, end: 20190718
  11. CEFUROXIME. [Concomitant]
     Active Substance: CEFUROXIME
     Route: 065
  12. POTASSIUM CHLORIDE. [Concomitant]
     Active Substance: POTASSIUM CHLORIDE
     Route: 065

REACTIONS (1)
  - Pulmonary arterial hypertension [Recovering/Resolving]

NARRATIVE: CASE EVENT DATE: 20190712
